FAERS Safety Report 18122996 (Version 1)
Quarter: 2020Q3

REPORT INFORMATION
  Report Type: Spontaneous
  Country: US (occurrence: US)
  Receive Date: 20200807
  Receipt Date: 20200807
  Transmission Date: 20201103
  Serious: No
  Sender: FDA-Public Use
  Company Number: US-JNJFOC-20200745366

PATIENT
  Age: 76 Year
  Sex: Female
  Weight: 52.21 kg

DRUGS (1)
  1. WOMENS ROGAINE UNSCENTED [Suspect]
     Active Substance: MINOXIDIL
     Indication: ALOPECIA
     Dosage: HALF A CUP ONCE A DAY?LAST USED ON 01?FEB?2020
     Route: 061
     Dates: start: 20190901

REACTIONS (1)
  - Drug ineffective [Unknown]
